FAERS Safety Report 20465772 (Version 1)
Quarter: 2022Q1

REPORT INFORMATION
  Report Type: Spontaneous
  Country: CA (occurrence: CA)
  Receive Date: 20220212
  Receipt Date: 20220212
  Transmission Date: 20220423
  Serious: Yes (Other)
  Sender: FDA-Public Use
  Company Number: CA-CELLTRION INC.-2021CA018902

PATIENT

DRUGS (11)
  1. INFLECTRA [Suspect]
     Active Substance: INFLIXIMAB-DYYB
     Indication: Ankylosing spondylitis
     Dosage: 5MG/KG,INDUCTION DOSES AT WEEK 0, 2 AND 6, THEN EVERY 6 WEEKS
     Route: 042
     Dates: start: 20210630
  2. INFLECTRA [Suspect]
     Active Substance: INFLIXIMAB-DYYB
     Dosage: 5MG/KG,INDUCTION DOSES AT WEEK 0, 2 AND 6, THEN EVERY 6 WEEKS
     Route: 042
     Dates: start: 20210811
  3. INFLECTRA [Suspect]
     Active Substance: INFLIXIMAB-DYYB
     Dosage: 5MG/KG,INDUCTION DOSES AT WEEK 0, 2 AND 6, THEN EVERY 6 WEEKS
     Route: 042
     Dates: start: 20211001
  4. INFLECTRA [Suspect]
     Active Substance: INFLIXIMAB-DYYB
     Dosage: 5MG/KG,INDUCTION DOSES AT WEEK 0, 2 AND 6, THEN EVERY 6 WEEKS
     Route: 042
     Dates: start: 20211110
  5. INFLECTRA [Suspect]
     Active Substance: INFLIXIMAB-DYYB
     Dosage: 5MG/KG,INDUCTION DOSES AT WEEK 0, 2 AND 6, THEN EVERY 6 WEEKS
     Route: 042
     Dates: start: 20220114
  6. CELEBREX [Concomitant]
     Active Substance: CELECOXIB
     Dosage: 1 DF, [NO DOSAGE INFORMATION AVAILABLE]
  7. CIMZIA [Concomitant]
     Active Substance: CERTOLIZUMAB PEGOL
     Dosage: UNK
  8. FLUOXETINE [Concomitant]
     Active Substance: FLUOXETINE HYDROCHLORIDE
     Dosage: 50 MG, DAILY, (50 MG DIE)
  9. PANTOPRAZOLE [Concomitant]
     Active Substance: PANTOPRAZOLE
     Dosage: UNK
  10. SEROQUEL [Concomitant]
     Active Substance: QUETIAPINE FUMARATE
     Dosage: UNK, AS NEEDED / [PRN]
  11. WELLBUTRIN [Concomitant]
     Active Substance: BUPROPION HYDROCHLORIDE
     Dosage: UNK

REACTIONS (6)
  - Pneumonia [Unknown]
  - Off label use [Unknown]
  - Inappropriate schedule of product administration [Unknown]
  - Presyncope [Recovering/Resolving]
  - Ear infection [Unknown]
  - Arthralgia [Not Recovered/Not Resolved]

NARRATIVE: CASE EVENT DATE: 20210101
